FAERS Safety Report 7493271-9 (Version None)
Quarter: 2011Q2

REPORT INFORMATION
  Report Type: 
  Country: None (occurrence: None)
  Receive Date: 20110520
  Receipt Date: 20110510
  Transmission Date: 20111010
  Serious: Yes (Other)
  Sender: FDA-Public Use
  Company Number: HR-PFIZER INC-2011107669

PATIENT
  Age: 79 Year
  Sex: Female

DRUGS (3)
  1. ATORVASTATIN [Suspect]
     Indication: BLOOD CHOLESTEROL INCREASED
     Dosage: 20 MG, 1X/DAY
  2. LANITOP [Concomitant]
     Dosage: 1 DF, 1X/DAY
     Dates: start: 20010101
  3. PANTOPRAZOLE [Suspect]
     Indication: GASTRITIS
     Dosage: 20 MG, 1X/DAY
     Dates: start: 20060101

REACTIONS (3)
  - DIZZINESS [None]
  - VERTIGO [None]
  - TINNITUS [None]
